FAERS Safety Report 6366090-4 (Version None)
Quarter: 2009Q3

REPORT INFORMATION
  Report Type: 
  Country: None (occurrence: None)
  Receive Date: 20090920
  Receipt Date: 20090121
  Transmission Date: 20100115
  Serious: No
  Sender: FDA-Public Use
  Company Number: US-BAUSCH-2009BL000265

PATIENT
  Age: 74 Year
  Sex: Male

DRUGS (5)
  1. NEOMYCIN AND POLYMXIN B SULFATES AND HYDROCORTISONE [Suspect]
     Indication: EAR PAIN
     Route: 001
     Dates: start: 20081001, end: 20081001
  2. NEOMYCIN AND POLYMXIN B SULFATES AND HYDROCORTISONE [Suspect]
     Indication: ERYTHEMA
     Route: 001
     Dates: start: 20081001, end: 20081001
  3. NEOMYCIN AND POLYMXIN B SULFATES AND HYDROCORTISONE [Suspect]
     Indication: EAR INFECTION
     Route: 001
     Dates: start: 20081001, end: 20081001
  4. METOPROLOL TARTRATE [Concomitant]
     Indication: HYPERTENSION
     Route: 048
  5. ASPIRIN [Concomitant]
     Indication: DRUG USE FOR UNKNOWN INDICATION
     Route: 048

REACTIONS (4)
  - EAR DISCOMFORT [None]
  - EAR PAIN [None]
  - HYPOACUSIS [None]
  - MEDICATION RESIDUE [None]
